FAERS Safety Report 5190139-8 (Version None)
Quarter: 2006Q4

REPORT INFORMATION
  Report Type: 
  Country: None (occurrence: None)
  Receive Date: 20061222
  Receipt Date: 20061213
  Transmission Date: 20070319
  Serious: No
  Sender: FDA-Public Use
  Company Number: JP-JNJFOC-20061202741

PATIENT
  Sex: Female
  Weight: 50 kg

DRUGS (8)
  1. LEVOFLOXACIN [Suspect]
     Indication: BRONCHITIS
     Route: 048
     Dates: start: 20060516, end: 20060528
  2. AMLODIPINE BESYLATE [Concomitant]
     Route: 048
  3. DIOVAN [Concomitant]
     Route: 048
  4. SERMION [Concomitant]
     Route: 048
  5. ASPARA CA [Concomitant]
     Route: 048
  6. SIGMART [Concomitant]
     Route: 048
  7. BENET [Concomitant]
     Route: 048
  8. BIOFERMIN [Concomitant]
     Route: 048

REACTIONS (1)
  - OEDEMA [None]
